FAERS Safety Report 8537530-7 (Version None)
Quarter: 2012Q3

REPORT INFORMATION
  Report Type: 
  Country: None (occurrence: None)
  Receive Date: 20120725
  Receipt Date: 20120711
  Transmission Date: 20120928
  Serious: Yes (Hospitalization)
  Sender: FDA-Public Use
  Company Number: US-BAXTER-2012BAX007526

PATIENT
  Sex: Male

DRUGS (4)
  1. DIANEAL LOW CALCIUM W/ DEXTROSE 1.5% [Suspect]
     Route: 033
  2. DIANEAL [Suspect]
     Indication: PERITONEAL DIALYSIS
     Route: 033
  3. DIANEAL [Suspect]
     Route: 033
  4. DIANEAL LOW CALCIUM W/ DEXTROSE 1.5% [Suspect]
     Indication: PERITONEAL DIALYSIS
     Route: 033

REACTIONS (21)
  - HYPOTENSION [None]
  - BLOOD PRESSURE INCREASED [None]
  - OEDEMA [None]
  - CONVULSION [None]
  - NAUSEA [None]
  - PROCEDURAL COMPLICATION [None]
  - DEHYDRATION [None]
  - DYSPNOEA [None]
  - VASCULAR RUPTURE [None]
  - ANAEMIA [None]
  - ABDOMINAL PAIN UPPER [None]
  - GASTROINTESTINAL MOTILITY DISORDER [None]
  - DIARRHOEA [None]
  - HALLUCINATION [None]
  - VOMITING [None]
  - RECTAL HAEMORRHAGE [None]
  - IMPAIRED GASTRIC EMPTYING [None]
  - ABDOMINAL DISTENSION [None]
  - DIVERTICULITIS [None]
  - PYREXIA [None]
  - WEIGHT DECREASED [None]
